FAERS Safety Report 19089234 (Version 1)
Quarter: 2021Q2

REPORT INFORMATION
  Report Type: Other
  Country: GB (occurrence: GB)
  Receive Date: 20210403
  Receipt Date: 20210403
  Transmission Date: 20210717
  Serious: Yes (Other)
  Sender: FDA-Public Use
  Company Number: GB-LUPIN PHARMACEUTICALS INC.-2021-03972

PATIENT
  Age: 24 Year
  Sex: Male
  Weight: 56 kg

DRUGS (2)
  1. PROPRANOLOL [Concomitant]
     Active Substance: PROPRANOLOL HYDROCHLORIDE
     Indication: ILL-DEFINED DISORDER
     Dosage: UNK UNK, QD
     Route: 065
     Dates: start: 20201222
  2. SERTRALINE HYDROCHLORIDE TABLETS [Suspect]
     Active Substance: SERTRALINE HYDROCHLORIDE
     Indication: PRODUCT USED FOR UNKNOWN INDICATION
     Dosage: 50 MILLIGRAM, QD
     Route: 065
     Dates: start: 20210222

REACTIONS (2)
  - Feeling abnormal [Unknown]
  - Joint stiffness [Recovered/Resolved]

NARRATIVE: CASE EVENT DATE: 2021
